FAERS Safety Report 16074466 (Version 2)
Quarter: 2019Q2

REPORT INFORMATION
  Report Type: Report from Study
  Country: US (occurrence: US)
  Receive Date: 20190314
  Receipt Date: 20190409
  Transmission Date: 20190711
  Serious: Yes (Death, Other)
  Sender: FDA-Public Use
  Company Number: US-ACTELION-A-NJ2019-187355

PATIENT
  Sex: Female

DRUGS (12)
  1. BOSENTAN TABLET 32 MG PED US [Suspect]
     Active Substance: BOSENTAN
     Indication: PULMONARY ARTERIAL HYPERTENSION
     Dosage: 8.32 MG, BID VIA NG TUBE
     Route: 049
     Dates: start: 20181220
  2. ENOXAPARIN [Concomitant]
     Active Substance: ENOXAPARIN
     Dosage: 7 MG, BID
     Route: 058
     Dates: start: 20180803, end: 20190208
  3. E.E.S. [Concomitant]
     Active Substance: ERYTHROMYCIN ETHYLSUCCINATE
     Dosage: 35.2 MG
     Dates: end: 20190208
  4. DEXTRAN [Concomitant]
     Active Substance: DEXTRAN
  5. SILDENAFIL. [Concomitant]
     Active Substance: SILDENAFIL
     Dosage: 1 MG/KG, TID
     Dates: start: 20181120, end: 20190208
  6. DILAUDID [Concomitant]
     Active Substance: HYDROMORPHONE HYDROCHLORIDE
     Dosage: 27 MCG
     Dates: start: 20190207, end: 20190208
  7. LASIX [Concomitant]
     Active Substance: FUROSEMIDE
     Dosage: 0.5 MG, Q6HRS
     Dates: start: 20181120, end: 20190208
  8. CHLOROTHIAZIDE. [Concomitant]
     Active Substance: CHLOROTHIAZIDE
     Dosage: 10 MG/KG, TID
     Dates: end: 20190208
  9. CLOPIDOGREL [Concomitant]
     Active Substance: CLOPIDOGREL BISULFATE
     Dosage: 0.2 MG/KG, QD PER NGTUBE
     Dates: end: 20190208
  10. FAMOTIDINE. [Concomitant]
     Active Substance: FAMOTIDINE
     Dosage: 1 MG
  11. BOSENTAN TABLET 32 MG PED US [Suspect]
     Active Substance: BOSENTAN
     Dosage: 4.48
     Route: 049
     Dates: start: 20181220
  12. NOREPINEPHRINE. [Concomitant]
     Active Substance: NOREPINEPHRINE
     Dosage: 0.03 MCG
     Dates: end: 20190208

REACTIONS (10)
  - Stent placement [Unknown]
  - Ileus [Unknown]
  - Marsupialisation [Unknown]
  - Splenomegaly [Unknown]
  - Pulmonary vein stenosis [Fatal]
  - Acute kidney injury [Unknown]
  - Chronic respiratory failure [Unknown]
  - Dialysis [Unknown]
  - Ophthalmoplegia [Unknown]
  - Pulmonary congestion [Unknown]
